FAERS Safety Report 24664436 (Version 1)
Quarter: 2024Q4

REPORT INFORMATION
  Report Type: Spontaneous
  Country: US (occurrence: None)
  Receive Date: 20241125
  Receipt Date: 20241125
  Transmission Date: 20250114
  Serious: Yes (Hospitalization)
  Sender: Public
  Company Number: None

PATIENT
  Age: 73 Year
  Sex: Male
  Weight: 117 kg

DRUGS (2)
  1. PEMBROLIZUMAB [Suspect]
     Active Substance: PEMBROLIZUMAB
     Indication: Neoplasm prophylaxis
     Dosage: FREQUENCY : EVERY THREE WEEKS;?
     Route: 042
     Dates: start: 20231018
  2. OLAPARIB [Suspect]
     Active Substance: OLAPARIB
     Indication: Neoplasm prophylaxis
     Dosage: FREQUENCY : DAILY;?
     Route: 048
     Dates: start: 20231018, end: 20231229

REACTIONS (6)
  - Mental status changes [None]
  - Pain in extremity [None]
  - Abdominal pain lower [None]
  - Road traffic accident [None]
  - SARS-CoV-2 test positive [None]
  - Pneumonia [None]

NARRATIVE: CASE EVENT DATE: 20231205
